FAERS Safety Report 15177895 (Version 3)
Quarter: 2018Q3

REPORT INFORMATION
  Report Type: Spontaneous
  Country: US (occurrence: US)
  Receive Date: 20180720
  Receipt Date: 20180823
  Transmission Date: 20181010
  Serious: Yes (Other)
  Sender: FDA-Public Use
  Company Number: US-BIOMARINAP-US-2018-119049

PATIENT
  Age: 14 Month
  Sex: Female

DRUGS (2)
  1. ALDURAZYME [Suspect]
     Active Substance: LARONIDASE
     Indication: MUCOPOLYSACCHARIDOSIS I
     Dosage: 8.7 MILLIGRAM
     Route: 041
     Dates: start: 20180608
  2. BENADRYL [Concomitant]
     Active Substance: DIPHENHYDRAMINE HYDROCHLORIDE
     Indication: PREMEDICATION

REACTIONS (6)
  - Eating disorder [Recovering/Resolving]
  - Hypertension [Recovering/Resolving]
  - Graft versus host disease in skin [Recovering/Resolving]
  - Eye swelling [Not Recovered/Not Resolved]
  - Unevaluable event [Recovering/Resolving]
  - Vomiting [Recovering/Resolving]

NARRATIVE: CASE EVENT DATE: 2018
